FAERS Safety Report 19165330 (Version 1)
Quarter: 2021Q2

REPORT INFORMATION
  Report Type: Report from Study
  Country: PL (occurrence: PL)
  Receive Date: 20210421
  Receipt Date: 20210421
  Transmission Date: 20210717
  Serious: Yes (Life-Threatening, Hospitalization, Other)
  Sender: FDA-Public Use
  Company Number: PL-PURDUE-USA-2021-0248047

PATIENT
  Age: 35 Year
  Sex: Male

DRUGS (1)
  1. MORPHINE SULFATE. [Suspect]
     Active Substance: MORPHINE SULFATE
     Indication: PERTHES DISEASE
     Dosage: 2400 MG, SINGLE
     Route: 040

REACTIONS (26)
  - Blood creatine phosphokinase increased [Unknown]
  - Blood potassium increased [Unknown]
  - Intentional overdose [Recovering/Resolving]
  - Blood creatine phosphokinase MB increased [Unknown]
  - Drug tolerance increased [Unknown]
  - Myocardial depression [Unknown]
  - Cardiogenic shock [Recovering/Resolving]
  - Hypotension [Recovering/Resolving]
  - Somnolence [Recovering/Resolving]
  - Ventricular dyssynchrony [Recovered/Resolved]
  - Oxygen saturation decreased [Recovering/Resolving]
  - N-terminal prohormone brain natriuretic peptide increased [Recovered/Resolved]
  - Right ventricular failure [Recovered/Resolved]
  - Cardiac failure congestive [Unknown]
  - Coma [Recovered/Resolved]
  - Blood creatine increased [Unknown]
  - Acute respiratory failure [Recovering/Resolving]
  - Drug screen positive [Unknown]
  - White blood cell count increased [Unknown]
  - Troponin T increased [Unknown]
  - Suicide attempt [Recovered/Resolved]
  - Drug abuse [Unknown]
  - Poisoning deliberate [Recovering/Resolving]
  - Bradypnoea [Recovered/Resolved]
  - PCO2 increased [Recovering/Resolving]
  - Ejection fraction decreased [Recovering/Resolving]
